FAERS Safety Report 13982834 (Version 1)
Quarter: 2017Q3

REPORT INFORMATION
  Report Type: Report from Study
  Country: US (occurrence: US)
  Receive Date: 20170918
  Receipt Date: 20170918
  Transmission Date: 20171128
  Serious: Yes (Hospitalization)
  Sender: FDA-Public Use
  Company Number: PHHO2017US002017

PATIENT
  Age: 76 Year
  Sex: Female
  Weight: 59 kg

DRUGS (2)
  1. GSK1120212 [Suspect]
     Active Substance: TRAMETINIB
     Indication: OVARIAN CANCER
     Dosage: 2 MG, QD
     Route: 048
     Dates: start: 20140714, end: 20141201
  2. GSK1120212 [Suspect]
     Active Substance: TRAMETINIB
     Dosage: 1.5 MG, QD (BEGINNING WITH CYCLE 2, CONTINUING WITH CYCLE 3)
     Route: 048

REACTIONS (5)
  - Small intestinal obstruction [Recovered/Resolved]
  - Nausea [Not Recovered/Not Resolved]
  - Vomiting [Not Recovered/Not Resolved]
  - Abdominal pain [Not Recovered/Not Resolved]
  - Diarrhoea [Not Recovered/Not Resolved]

NARRATIVE: CASE EVENT DATE: 20141007
